FAERS Safety Report 20866666 (Version 1)
Quarter: 2022Q2

REPORT INFORMATION
  Report Type: Spontaneous
  Country: IE (occurrence: IE)
  Receive Date: 20220524
  Receipt Date: 20220524
  Transmission Date: 20220720
  Serious: Yes (Other)
  Sender: FDA-Public Use
  Company Number: IE-EXELIXIS-CABO-22052111

PATIENT

DRUGS (2)
  1. CABOMETYX [Suspect]
     Active Substance: CABOZANTINIB S-MALATE
     Indication: Metastatic renal cell carcinoma
     Dosage: 60 MG
     Dates: start: 201704
  2. CABOMETYX [Suspect]
     Active Substance: CABOZANTINIB S-MALATE
     Dosage: 40 MG
     Dates: start: 201707, end: 202002

REACTIONS (4)
  - Bile duct stone [Unknown]
  - Clostridium difficile infection [Unknown]
  - Cholecystitis [Unknown]
  - Diarrhoea [Unknown]
